FAERS Safety Report 19909839 (Version 2)
Quarter: 2021Q4

REPORT INFORMATION
  Report Type: Spontaneous
  Country: US (occurrence: US)
  Receive Date: 20211003
  Receipt Date: 20211021
  Transmission Date: 20220303
  Serious: No
  Sender: FDA-Public Use
  Company Number: US-JNJFOC-20210921564

PATIENT
  Age: 27 Year
  Sex: Female
  Weight: 122.13 kg

DRUGS (1)
  1. TREMFYA [Suspect]
     Active Substance: GUSELKUMAB
     Indication: Psoriasis
     Dosage: DOSING IS 1 FOR FIRST 2 MONTHS AND THEN EVERY 8 WEEKS.
     Route: 065
     Dates: start: 202108

REACTIONS (3)
  - Device issue [Unknown]
  - Product dose omission issue [Unknown]
  - Needle issue [Unknown]

NARRATIVE: CASE EVENT DATE: 20210909
